FAERS Safety Report 7071436-8 (Version None)
Quarter: 2010Q4

REPORT INFORMATION
  Report Type: 
  Country: None (occurrence: None)
  Receive Date: 20101029
  Receipt Date: 20091020
  Transmission Date: 20110411
  Serious: No
  Sender: FDA-Public Use
  Company Number: A0805365A

PATIENT
  Age: 72 Year
  Sex: Female

DRUGS (4)
  1. ADVAIR DISKUS 100/50 [Suspect]
     Indication: ASTHMA
     Route: 055
     Dates: start: 20090423
  2. XOLAIR [Concomitant]
  3. VITAMINS [Concomitant]
  4. SINGULAIR [Concomitant]

REACTIONS (2)
  - ORAL CANDIDIASIS [None]
  - OROPHARYNGEAL PAIN [None]
